FAERS Safety Report 8167269-1 (Version None)
Quarter: 2012Q1

REPORT INFORMATION
  Report Type: 
  Country: None (occurrence: None)
  Receive Date: 20120227
  Receipt Date: 20120223
  Transmission Date: 20120608
  Serious: Yes (Life-Threatening)
  Sender: FDA-Public Use
  Company Number: ES-PFIZER INC-2012048871

PATIENT
  Age: 64 Year
  Sex: Male

DRUGS (6)
  1. METFORMIN HCL [Interacting]
     Indication: DIABETES MELLITUS
     Dosage: 2.6 G, 1X/DAY
     Route: 048
     Dates: start: 20080401, end: 20110419
  2. GLYBURIDE [Interacting]
     Indication: DIABETES MELLITUS
     Dosage: 15 MG, 1X/DAY
     Route: 048
     Dates: start: 20060201, end: 20110419
  3. ENALAPRIL [Interacting]
     Indication: HYPERTENSION
     Dosage: 10 MG, 1X/DAY
     Route: 048
     Dates: start: 20060201, end: 20110419
  4. FUROSEMIDE [Interacting]
     Indication: HYPERTENSION
     Dosage: 40 MG, 1X/DAY
     Route: 048
     Dates: start: 20060201, end: 20110419
  5. ALDACTONE [Suspect]
     Indication: HYPERTENSION
     Dosage: 100 MG, 1X/DAY
     Route: 048
     Dates: start: 20060201, end: 20110419
  6. SINTROM [Concomitant]
     Indication: ATRIAL FIBRILLATION
     Dosage: UNK
     Route: 048
     Dates: start: 20060201, end: 20110419

REACTIONS (4)
  - DRUG INTERACTION [None]
  - HYPERKALAEMIA [None]
  - HYPOGLYCAEMIA [None]
  - RENAL FAILURE ACUTE [None]
